FAERS Safety Report 18322102 (Version 2)
Quarter: 2020Q4

REPORT INFORMATION
  Report Type: Spontaneous
  Country: US (occurrence: US)
  Receive Date: 20200929
  Receipt Date: 20201028
  Transmission Date: 20210113
  Serious: Yes (Other)
  Sender: FDA-Public Use
  Company Number: US-ROCHE-2686381

PATIENT
  Sex: Female
  Weight: 43.58 kg

DRUGS (5)
  1. XOLAIR [Suspect]
     Active Substance: OMALIZUMAB
     Indication: ASTHMA
     Dosage: SD PFS 150MG/ML
     Route: 058
     Dates: start: 201610
  2. MONTELUKAST [Concomitant]
     Active Substance: MONTELUKAST SODIUM
     Indication: ASTHMA
     Dosage: EVERY NIGHT BEDTIME
     Route: 048
     Dates: start: 201404, end: 202009
  3. SYMBICORT [Concomitant]
     Active Substance: BUDESONIDE\FORMOTEROL FUMARATE DIHYDRATE
     Indication: ASTHMA
     Route: 055
     Dates: start: 201602
  4. XOLAIR [Suspect]
     Active Substance: OMALIZUMAB
  5. XOLAIR [Suspect]
     Active Substance: OMALIZUMAB

REACTIONS (5)
  - Intentional self-injury [Unknown]
  - Emotional disorder [Unknown]
  - Anxiety [Unknown]
  - Suicidal ideation [Recovering/Resolving]
  - Depression [Recovering/Resolving]
